FAERS Safety Report 5538081-4 (Version None)
Quarter: 2007Q4

REPORT INFORMATION
  Report Type: 
  Country: None (occurrence: None)
  Receive Date: 20071207
  Receipt Date: 20071204
  Transmission Date: 20080405
  Serious: No
  Sender: FDA-Public Use
  Company Number: US-BOEHRINGER INGELHEIM PHARMACEUTICALS, INC.-2006-BP-08960BP

PATIENT
  Sex: Female
  Weight: 81.6 kg

DRUGS (2)
  1. PERSANTINE [Suspect]
     Dates: start: 20060719
  2. BLOOD PRESSURE MEDICATION (SPECIFICS NOT REPORTED) [Concomitant]
     Indication: BLOOD PRESSURE

REACTIONS (6)
  - BLOOD PRESSURE INCREASED [None]
  - ERYTHEMA OF EYELID [None]
  - EYELID OEDEMA [None]
  - LACRIMATION INCREASED [None]
  - SCLERAL DISCOLOURATION [None]
  - TREMOR [None]
